FAERS Safety Report 12186240 (Version 3)
Quarter: 2016Q3

REPORT INFORMATION
  Report Type: Spontaneous
  Country: JP (occurrence: JP)
  Receive Date: 20160317
  Receipt Date: 20160727
  Transmission Date: 20161109
  Serious: Yes (Hospitalization, Other)
  Sender: FDA-Public Use
  Company Number: JP-ABBVIE-16K-087-1546054-00

PATIENT
  Age: 49 Year
  Sex: Male
  Weight: 65 kg

DRUGS (4)
  1. HUMIRA [Suspect]
     Active Substance: ADALIMUMAB
     Indication: PSORIATIC ARTHROPATHY
  2. LOXOPROFEN SODIUM HYDRATE [Concomitant]
     Active Substance: LOXOPROFEN SODIUM DIHYDRATE
     Indication: PRODUCT USED FOR UNKNOWN INDICATION
     Dates: start: 201405
  3. TEPRENONE [Concomitant]
     Active Substance: TEPRENONE
     Indication: PRODUCT USED FOR UNKNOWN INDICATION
     Dates: start: 201405
  4. HUMIRA [Suspect]
     Active Substance: ADALIMUMAB
     Indication: PSORIASIS
     Route: 058
     Dates: start: 20140523, end: 201502

REACTIONS (2)
  - Blood triglycerides increased [Recovering/Resolving]
  - Hydrocele [Recovering/Resolving]

NARRATIVE: CASE EVENT DATE: 20140603
